FAERS Safety Report 17063832 (Version 1)
Quarter: 2019Q4

REPORT INFORMATION
  Report Type: Spontaneous
  Country: IT (occurrence: IT)
  Receive Date: 20191122
  Receipt Date: 20191122
  Transmission Date: 20200122
  Serious: Yes (Hospitalization, Other)
  Sender: FDA-Public Use
  Company Number: IT-TEVA-2019-IT-1142552

PATIENT
  Age: 55 Year
  Sex: Female

DRUGS (9)
  1. 5-FU [Suspect]
     Active Substance: FLUOROURACIL
     Indication: COLORECTAL CANCER METASTATIC
     Dosage: FOLFOX6 REGIMEN; ON FIRST DAY
     Route: 040
     Dates: start: 201611
  2. ECULIZUMAB [Suspect]
     Active Substance: ECULIZUMAB
     Indication: ATYPICAL HAEMOLYTIC URAEMIC SYNDROME
     Dosage: INDUCTION FOR 4 WEEKS
     Route: 042
  3. ECULIZUMAB [Suspect]
     Active Substance: ECULIZUMAB
     Dosage: MAINTENANCE THERAPY; 5 CYCLES WERE ADMINISTERED
     Route: 042
     Dates: end: 201803
  4. CIPROFLOXACIN. [Concomitant]
     Active Substance: CIPROFLOXACIN
     Indication: ANTIBIOTIC PROPHYLAXIS
     Route: 065
  5. LEUCOVORIN. [Suspect]
     Active Substance: LEUCOVORIN
     Indication: COLORECTAL CANCER METASTATIC
     Dosage: FOLFOX6 REGIMEN; ADMINISTERED OVER 2 HOURS
     Route: 042
     Dates: start: 201611
  6. 5-FU [Suspect]
     Active Substance: FLUOROURACIL
     Dosage: FOLFOX6 REGIMEN; CONTINUOUS INFUSION FOR 46 HOURS, EVERY 2 WEEKS
     Route: 041
  7. BEVACIZUMAB. [Suspect]
     Active Substance: BEVACIZUMAB
     Indication: COLORECTAL CANCER METASTATIC
     Route: 065
     Dates: start: 201611
  8. SIMVASTATIN. [Concomitant]
     Active Substance: SIMVASTATIN
     Indication: HYPERCHOLESTEROLAEMIA
     Route: 065
  9. OXALIPLATIN. [Suspect]
     Active Substance: OXALIPLATIN
     Indication: COLORECTAL CANCER METASTATIC
     Dosage: FOLFOX6 REGIMEN
     Route: 042
     Dates: start: 201611

REACTIONS (2)
  - Pneumonia [Recovered/Resolved]
  - Atypical haemolytic uraemic syndrome [Recovered/Resolved]

NARRATIVE: CASE EVENT DATE: 2017
